FAERS Safety Report 10244259 (Version 1)
Quarter: 2014Q2

REPORT INFORMATION
  Report Type: Spontaneous
  Country: CN (occurrence: CN)
  Receive Date: 20140618
  Receipt Date: 20140618
  Transmission Date: 20141212
  Serious: Yes (Other)
  Sender: FDA-Public Use
  Company Number: CN-ELI_LILLY_AND_COMPANY-CN201406005369

PATIENT
  Age: 4 Year
  Sex: Male
  Weight: 17 kg

DRUGS (1)
  1. CECLOR [Suspect]
     Indication: BRONCHITIS
     Dosage: 0.125 G, TID
     Route: 048
     Dates: start: 20131128, end: 20131129

REACTIONS (1)
  - Drug hypersensitivity [Recovering/Resolving]
